FAERS Safety Report 23963340 (Version 1)
Quarter: 2024Q2

REPORT INFORMATION
  Report Type: Spontaneous
  Country: US (occurrence: None)
  Receive Date: 20240611
  Receipt Date: 20240611
  Transmission Date: 20240716
  Serious: Yes (Death)
  Sender: FDA-Public Use
  Company Number: None

PATIENT
  Age: 69 Year
  Sex: Male
  Weight: 74 kg

DRUGS (13)
  1. TERIFLUNOMIDE [Suspect]
     Active Substance: TERIFLUNOMIDE
  2. ASA [Concomitant]
  3. ATORVASTATIN [Concomitant]
  4. RANEXA [Concomitant]
  5. SOTALOL [Concomitant]
     Active Substance: SOTALOL
  6. TRAZODONE [Concomitant]
  7. WARFARIN [Concomitant]
     Active Substance: WARFARIN
  8. ISOROEBRE [Concomitant]
  9. EFFEXOR [Concomitant]
  10. Fluoxcetine [Concomitant]
  11. ZETIA [Concomitant]
  12. Nitroglycrin [Concomitant]
  13. TRELEGY ELLIPTA [Concomitant]
     Active Substance: FLUTICASONE FUROATE\UMECLIDINIUM BROMIDE\VILANTEROL TRIFENATATE

REACTIONS (1)
  - Death [None]

NARRATIVE: CASE EVENT DATE: 20240601
